FAERS Safety Report 16925004 (Version 3)
Quarter: 2022Q2

REPORT INFORMATION
  Report Type: Spontaneous
  Country: US (occurrence: US)
  Receive Date: 20191016
  Receipt Date: 20220426
  Transmission Date: 20220721
  Serious: No
  Sender: FDA-Public Use
  Company Number: US-PFIZER INC-2019447514

PATIENT
  Age: 68 Year
  Sex: Female
  Weight: 68.04 kg

DRUGS (1)
  1. CHANTIX [Suspect]
     Active Substance: VARENICLINE TARTRATE
     Indication: Smoking cessation therapy
     Dosage: 1 MG, 2X/DAY
     Route: 048
     Dates: start: 201909

REACTIONS (5)
  - Nausea [Recovered/Resolved]
  - Arthritis [Unknown]
  - Sensitivity to weather change [Unknown]
  - Recalled product administered [Unknown]
  - Intentional product use issue [Unknown]

NARRATIVE: CASE EVENT DATE: 20190901
